FAERS Safety Report 19796688 (Version 6)
Quarter: 2022Q1

REPORT INFORMATION
  Report Type: Report from Study
  Country: BR (occurrence: BR)
  Receive Date: 20210907
  Receipt Date: 20220317
  Transmission Date: 20220423
  Serious: Yes (Other)
  Sender: FDA-Public Use
  Company Number: NVSC2021BR016392

PATIENT
  Age: 45 Year
  Sex: Female

DRUGS (9)
  1. KISQALI [Suspect]
     Active Substance: RIBOCICLIB
     Indication: Product used for unknown indication
     Dosage: UNK
     Route: 065
     Dates: start: 20210125
  2. KISQALI [Suspect]
     Active Substance: RIBOCICLIB
     Dosage: UNK
     Route: 065
  3. TAMOXIFEN [Suspect]
     Active Substance: TAMOXIFEN
     Indication: Breast cancer
     Dosage: UNK
     Route: 065
  4. TAMOXIFEN [Suspect]
     Active Substance: TAMOXIFEN
     Indication: Metastases to liver
     Dosage: UNK
     Route: 065
  5. TAMOXIFEN [Suspect]
     Active Substance: TAMOXIFEN
     Indication: Metastases to lung
     Dosage: UNK
     Route: 065
  6. ZOLPIDEM [Suspect]
     Active Substance: ZOLPIDEM TARTRATE
     Indication: Insomnia
     Dosage: UNK
     Route: 065
  7. CITALOPRAM [Suspect]
     Active Substance: CITALOPRAM HYDROBROMIDE
     Indication: Insomnia
     Dosage: UNK
     Route: 065
  8. ESCITALOPRAM [Suspect]
     Active Substance: ESCITALOPRAM OXALATE
     Indication: Antidepressant therapy
     Dosage: UNK BEFORE KISQALI
     Route: 065
  9. ZOLADEX [Concomitant]
     Active Substance: GOSERELIN ACETATE
     Indication: Product used for unknown indication
     Dosage: UNK
     Route: 065

REACTIONS (35)
  - Blood pressure abnormal [Unknown]
  - Hepatic cancer [Not Recovered/Not Resolved]
  - Feeling of despair [Unknown]
  - Eye pain [Recovering/Resolving]
  - Ocular discomfort [Recovering/Resolving]
  - Arthralgia [Unknown]
  - Balance disorder [Unknown]
  - Respiratory rate increased [Unknown]
  - Cervical cyst [Unknown]
  - Chest pain [Recovered/Resolved]
  - Malaise [Recovered/Resolved]
  - Malaise [Unknown]
  - Pain in extremity [Unknown]
  - Hypertension [Not Recovered/Not Resolved]
  - Hepatic function abnormal [Unknown]
  - Tension [Unknown]
  - Nervousness [Recovering/Resolving]
  - Eating disorder [Recovered/Resolved]
  - Vision blurred [Recovering/Resolving]
  - Visual impairment [Unknown]
  - Bone pain [Unknown]
  - Asthenia [Recovered/Resolved]
  - Illness [Unknown]
  - Product availability issue [Unknown]
  - Hepatic mass [Unknown]
  - Breast mass [Not Recovered/Not Resolved]
  - Nausea [Recovered/Resolved]
  - Headache [Unknown]
  - Back pain [Recovered/Resolved]
  - Fatigue [Recovered/Resolved]
  - Insomnia [Recovering/Resolving]
  - Thyroid mass [Unknown]
  - Anxiety [Unknown]
  - Carbohydrate antigen 15-3 increased [Unknown]
  - Nodule [Unknown]

NARRATIVE: CASE EVENT DATE: 20210301
